FAERS Safety Report 14089055 (Version 1)
Quarter: 2017Q4

REPORT INFORMATION
  Report Type: Spontaneous
  Country: JP (occurrence: JP)
  Receive Date: 20171013
  Receipt Date: 20171013
  Transmission Date: 20180321
  Serious: Yes (Other)
  Sender: FDA-Public Use
  Company Number: PHJP2017JP030544

PATIENT
  Age: 85 Year
  Sex: Female

DRUGS (2)
  1. RIVASTACH [Suspect]
     Active Substance: RIVASTIGMINE
     Indication: DEMENTIA ALZHEIMER^S TYPE
     Dosage: 4.5 MG, UNK
     Route: 062
     Dates: start: 20170923
  2. NEORAL [Suspect]
     Active Substance: CYCLOSPORINE
     Indication: APLASTIC ANAEMIA
     Dosage: 35 MG, BID (25 MG CAPSULE + 10 MG CAPSULE IN THE MORNING AND EVENING)
     Route: 048

REACTIONS (7)
  - Dysarthria [Unknown]
  - Dementia Alzheimer^s type [Unknown]
  - Language disorder [Unknown]
  - Dyslalia [Unknown]
  - Product use in unapproved indication [Unknown]
  - Blood test abnormal [Unknown]
  - Hirsutism [Unknown]

NARRATIVE: CASE EVENT DATE: 201708
